FAERS Safety Report 21507818 (Version 8)
Quarter: 2023Q4

REPORT INFORMATION
  Report Type: Spontaneous
  Country: US (occurrence: US)
  Receive Date: 20221026
  Receipt Date: 20231124
  Transmission Date: 20240110
  Serious: Yes (Other)
  Sender: FDA-Public Use
  Company Number: US-PFIZER INC-PV202200090514

PATIENT
  Age: 77 Year
  Sex: Female

DRUGS (3)
  1. IBRANCE [Suspect]
     Active Substance: PALBOCICLIB
     Indication: Breast cancer
     Dosage: 100 MG
  2. IBRANCE [Suspect]
     Active Substance: PALBOCICLIB
     Dosage: 75MG ON DAYS 1-21 OF EACH 28-DAY CYCLE. TAKE WHOLE WITH WATER, WITH OR WITHOUT FOOD
     Route: 048
  3. IBRANCE [Suspect]
     Active Substance: PALBOCICLIB
     Dosage: 75 MG
     Dates: start: 20230705, end: 2023

REACTIONS (10)
  - Red blood cell count decreased [Unknown]
  - Platelet count abnormal [Unknown]
  - Haemoglobin decreased [Unknown]
  - White blood cell count decreased [Unknown]
  - Tumour marker increased [Unknown]
  - Cardiac murmur [Unknown]
  - Tooth disorder [Unknown]
  - Tremor [Unknown]
  - Epistaxis [Recovering/Resolving]
  - Neoplasm progression [Unknown]
